FAERS Safety Report 9614561 (Version 3)
Quarter: 2014Q2

REPORT INFORMATION
  Report Type: Spontaneous
  Country: GB (occurrence: GB)
  Receive Date: 20131011
  Receipt Date: 20140611
  Transmission Date: 20141212
  Serious: Yes (Death, Hospitalization, Other)
  Sender: FDA-Public Use
  Company Number: PHFR2013GB005712

PATIENT
  Age: 76 Year
  Sex: Male

DRUGS (6)
  1. CLOZARIL [Suspect]
     Indication: SCHIZOPHRENIA
     Dosage: UNK
     Route: 048
     Dates: start: 20040110
  2. ADCAL D3 [Concomitant]
     Dosage: UNK (ONE AT BREAKFAST AND ONE LUNCH)
  3. ALENDRONIC ACID [Concomitant]
     Dosage: 70 MG, ONCE WEEKLY
  4. LACTULOSE [Concomitant]
     Dosage: 15 ML, UNK
  5. SENNA [Concomitant]
     Dosage: UNK
  6. AMOXICILLIN [Concomitant]
     Dosage: UNK

REACTIONS (20)
  - Lower respiratory tract infection [Fatal]
  - General physical health deterioration [Fatal]
  - Mental impairment [Fatal]
  - Dementia [Fatal]
  - Senile dementia [Fatal]
  - Bronchopneumonia [Fatal]
  - Humerus fracture [Recovering/Resolving]
  - Femoral neck fracture [Recovering/Resolving]
  - Fall [Unknown]
  - Dystonia [Recovered/Resolved]
  - Hyperthyroidism [Recovered/Resolved]
  - Blood thyroid stimulating hormone increased [Recovered/Resolved]
  - Asthenia [Unknown]
  - Gait disturbance [Unknown]
  - Blood urea increased [Unknown]
  - Protein total decreased [Unknown]
  - Antipsychotic drug level increased [Recovering/Resolving]
  - Red blood cell count decreased [Unknown]
  - Haemoglobin decreased [Unknown]
  - Mean cell haemoglobin concentration decreased [Unknown]
